FAERS Safety Report 3652677 (Version 3)
Quarter: 2014Q4

REPORT INFORMATION
  Report Type: Spontaneous
  Country: US (occurrence: US)
  Receive Date: 20010510
  Receipt Date: 20141227
  Transmission Date: 20150529
  Serious: Yes (Other)
  Sender: FDA-Public Use
  Company Number: PHBS2001US04351

PATIENT
  Age: 40 Year
  Sex: Male

DRUGS (1)
  1. DICLOFENAC SODIUM. [Suspect]
     Active Substance: DICLOFENAC SODIUM
     Indication: BACK PAIN
     Dosage: 100 MG, BID
     Route: 065

REACTIONS (6)
  - Protein-losing gastroenteropathy [Recovered/Resolved]
  - Inflammation [Unknown]
  - Intestinal ulcer [Unknown]
  - Hypoalbuminaemia [Unknown]
  - Gastritis erosive [Unknown]
  - Iron deficiency anaemia [Unknown]
